FAERS Safety Report 7390157-5 (Version None)
Quarter: 2011Q2

REPORT INFORMATION
  Report Type: 
  Country: None (occurrence: None)
  Receive Date: 20110401
  Receipt Date: 20110322
  Transmission Date: 20111010
  Serious: Yes (Other)
  Sender: FDA-Public Use
  Company Number: PHHY2011US16800

PATIENT
  Sex: Female

DRUGS (7)
  1. FAMPRIDINE [Concomitant]
     Dosage: 10 MG, Q12H
     Route: 048
  2. VITAMIN D [Concomitant]
     Dosage: 1000 UKN, QD
     Route: 048
  3. GILENYA [Suspect]
     Indication: MULTIPLE SCLEROSIS
     Dosage: 0.5 MG, QD
     Route: 048
     Dates: start: 20110222
  4. LORAZEPAM [Concomitant]
     Dosage: 0.5 MG, BID
     Route: 048
  5. ZOLOFT [Concomitant]
     Dosage: 100 MG, DAILY
     Route: 048
  6. METHOCARBAMOL [Concomitant]
     Dosage: 500 MG, QHS
     Route: 048
  7. BACLOFEN [Concomitant]
     Dosage: 10 MG, BID
     Route: 048

REACTIONS (2)
  - ABNORMAL DREAMS [None]
  - NIGHTMARE [None]
